FAERS Safety Report 21579665 (Version 1)
Quarter: 2022Q4

REPORT INFORMATION
  Report Type: Spontaneous
  Country: DE (occurrence: DE)
  Receive Date: 20221110
  Receipt Date: 20221110
  Transmission Date: 20230112
  Serious: Yes (Hospitalization)
  Sender: FDA-Public Use
  Company Number: DE-ADRED-07772-01

PATIENT
  Age: 59 Year
  Sex: Male
  Weight: 160 kg

DRUGS (4)
  1. TORSEMIDE [Suspect]
     Active Substance: TORSEMIDE
     Indication: Product used for unknown indication
     Dosage: 5 MILLIGRAM, 5 MG, 1-0-0-0, TABLET
     Route: 048
  2. IBUPROFEN [Concomitant]
     Active Substance: IBUPROFEN
     Indication: Product used for unknown indication
     Dosage: 600 MILLIGRAM, 600 MG, NEED
     Route: 048
  3. AMLODIPINE\RAMIPRIL [Suspect]
     Active Substance: AMLODIPINE\RAMIPRIL
     Indication: Product used for unknown indication
     Dosage: UNK, 5|5 MG, 1-0-0-0, CAPSULE
     Route: 048
  4. FORMOTEROL [Concomitant]
     Active Substance: FORMOTEROL
     Dosage: 12.5 MICROGRAM, 12.5 ?G, 1-0-0-0, INHALATION CAPS

REACTIONS (5)
  - General physical health deterioration [Unknown]
  - Renal impairment [Unknown]
  - Dyspnoea [Unknown]
  - Cough [Unknown]
  - Abdominal pain [Unknown]
